FAERS Safety Report 18182229 (Version 1)
Quarter: 2020Q3

REPORT INFORMATION
  Report Type: Report from Study
  Country: US (occurrence: US)
  Receive Date: 20200821
  Receipt Date: 20200821
  Transmission Date: 20201103
  Serious: Yes (Other)
  Sender: FDA-Public Use
  Company Number: US-INDIVIOR LIMITED-INDV-126012-2020

PATIENT
  Age: 31 Year
  Sex: Male

DRUGS (1)
  1. SUBLOCADE [Suspect]
     Active Substance: BUPRENORPHINE
     Indication: DRUG DEPENDENCE
     Dosage: 300 MILLIGRAM, QMO
     Route: 058
     Dates: start: 20200813

REACTIONS (9)
  - Chest discomfort [Unknown]
  - Anxiety [Unknown]
  - Nasal congestion [Unknown]
  - Hallucination [Unknown]
  - Paraesthesia [Unknown]
  - Confusional state [Unknown]
  - Dysphagia [Unknown]
  - Micturition urgency [Unknown]
  - Somnolence [Not Recovered/Not Resolved]

NARRATIVE: CASE EVENT DATE: 20200813
